FAERS Safety Report 25270074 (Version 1)
Quarter: 2025Q2

REPORT INFORMATION
  Report Type: Spontaneous
  Country: NL (occurrence: NL)
  Receive Date: 20250505
  Receipt Date: 20250505
  Transmission Date: 20250717
  Serious: Yes (Hospitalization)
  Sender: MYLAN
  Company Number: None

PATIENT
  Age: 75 Year
  Sex: Female
  Weight: 78 kg

DRUGS (12)
  1. METOPROLOL [Suspect]
     Active Substance: METOPROLOL
     Indication: Hypertension
     Dosage: 50 MILLIGRAM, QD, 1 X PER  DAY 1 PIECE
     Dates: start: 20250401
  2. METOPROLOL [Suspect]
     Active Substance: METOPROLOL
     Indication: Atrial fibrillation
     Dosage: 50 MILLIGRAM, QD, 1 X PER  DAY 1 PIECE
     Dates: start: 20250401
  3. METOPROLOL [Suspect]
     Active Substance: METOPROLOL
     Dosage: 50 MILLIGRAM, QD, 1 X PER  DAY 1 PIECE
     Route: 048
     Dates: start: 20250401
  4. METOPROLOL [Suspect]
     Active Substance: METOPROLOL
     Dosage: 50 MILLIGRAM, QD, 1 X PER  DAY 1 PIECE
     Route: 048
     Dates: start: 20250401
  5. METOPROLOL [Suspect]
     Active Substance: METOPROLOL
     Dosage: 100 MILLIGRAM, QD, 1 X PER  DAY 1 PIECE
  6. METOPROLOL [Suspect]
     Active Substance: METOPROLOL
     Dosage: 100 MILLIGRAM, QD, 1 X PER  DAY 1 PIECE
  7. METOPROLOL [Suspect]
     Active Substance: METOPROLOL
     Dosage: 100 MILLIGRAM, QD, 1 X PER  DAY 1 PIECE
     Route: 048
  8. METOPROLOL [Suspect]
     Active Substance: METOPROLOL
     Dosage: 100 MILLIGRAM, QD, 1 X PER  DAY 1 PIECE
     Route: 048
  9. ISOPTIN SR [Suspect]
     Active Substance: VERAPAMIL HYDROCHLORIDE
     Indication: Atrial fibrillation
     Dosage: 240 MILLIGRAM, QD, 1 X PER  DAY 1 PIECE
     Dates: start: 20240101, end: 20250405
  10. ISOPTIN SR [Suspect]
     Active Substance: VERAPAMIL HYDROCHLORIDE
     Dosage: 240 MILLIGRAM, QD, 1 X PER  DAY 1 PIECE
     Route: 048
     Dates: start: 20240101, end: 20250405
  11. ISOPTIN SR [Suspect]
     Active Substance: VERAPAMIL HYDROCHLORIDE
     Dosage: 240 MILLIGRAM, QD, 1 X PER  DAY 1 PIECE
     Route: 048
     Dates: start: 20240101, end: 20250405
  12. ISOPTIN SR [Suspect]
     Active Substance: VERAPAMIL HYDROCHLORIDE
     Dosage: 240 MILLIGRAM, QD, 1 X PER  DAY 1 PIECE
     Dates: start: 20240101, end: 20250405

REACTIONS (4)
  - Syncope [Recovered/Resolved]
  - Dizziness [Recovered/Resolved]
  - Fatigue [Recovered/Resolved]
  - Sinus bradycardia [Recovered/Resolved]
